FAERS Safety Report 12305494 (Version 1)
Quarter: 2016Q2

REPORT INFORMATION
  Report Type: Spontaneous
  Country: None (occurrence: None)
  Receive Date: 20160425
  Receipt Date: 20160425
  Transmission Date: 20160815
  Serious: No
  Sender: FDA-Public Use
  Company Number: None

PATIENT
  Age: 69 Year
  Sex: Male
  Weight: 107.96 kg

DRUGS (1)
  1. PONATINIB 15 MG [Suspect]
     Active Substance: PONATINIB
     Indication: CHRONIC MYELOID LEUKAEMIA
     Route: 048
     Dates: start: 20160113, end: 20160316

REACTIONS (2)
  - Rash [None]
  - Hepatic enzyme increased [None]

NARRATIVE: CASE EVENT DATE: 20160316
